FAERS Safety Report 5386627-1 (Version None)
Quarter: 2007Q3

REPORT INFORMATION
  Report Type: 
  Country: None (occurrence: None)
  Receive Date: 20070713
  Receipt Date: 20070712
  Transmission Date: 20080115
  Serious: Yes (Hospitalization)
  Sender: FDA-Public Use
  Company Number: A0663190A

PATIENT
  Age: 23 Year
  Sex: Male
  Weight: 109.1 kg

DRUGS (2)
  1. ALLI [Suspect]
     Indication: WEIGHT LOSS DIET
     Route: 065
     Dates: start: 20070617, end: 20070702
  2. MULTI-VITAMIN [Concomitant]

REACTIONS (7)
  - ABDOMINAL PAIN UPPER [None]
  - CHOLECYSTITIS [None]
  - CHOLELITHIASIS [None]
  - GALLBLADDER OEDEMA [None]
  - HEPATITIS [None]
  - LOCALISED INTRAABDOMINAL FLUID COLLECTION [None]
  - PHARMACEUTICAL PRODUCT COMPLAINT [None]
